FAERS Safety Report 16915958 (Version 6)
Quarter: 2020Q3

REPORT INFORMATION
  Report Type: Spontaneous
  Country: JP (occurrence: JP)
  Receive Date: 20191014
  Receipt Date: 20200826
  Transmission Date: 20201102
  Serious: Yes (Hospitalization, Other)
  Sender: FDA-Public Use
  Company Number: JP-009507513-1910JPN001179J

PATIENT
  Age: 81 Year
  Sex: Male
  Weight: 62 kg

DRUGS (30)
  1. EMEND [Concomitant]
     Active Substance: APREPITANT
     Dosage: 80 MILLIGRAM, QD
     Route: 048
     Dates: start: 20191205, end: 20191206
  2. ALOXI [Concomitant]
     Active Substance: PALONOSETRON HYDROCHLORIDE
     Dosage: 0.75 MILLIGRAM, QD
     Route: 041
     Dates: start: 20191003, end: 20191003
  3. CARBOPLATIN. [Suspect]
     Active Substance: CARBOPLATIN
     Dosage: 360 MILLIGRAM, Q3W
     Route: 041
     Dates: start: 20190829, end: 20190829
  4. EMEND [Concomitant]
     Active Substance: APREPITANT
     Dosage: 80 MILLIGRAM, QD
     Route: 048
     Dates: start: 20191004, end: 20191005
  5. DEXART [Concomitant]
     Active Substance: DEXAMETHASONE SODIUM PHOSPHATE
     Dosage: 4.95 MILLIGRAM, QD
     Route: 041
     Dates: start: 20191003, end: 20191003
  6. CARBOPLATIN. [Suspect]
     Active Substance: CARBOPLATIN
     Indication: NON-SMALL CELL LUNG CANCER
     Dosage: 330 MILLIGRAM, Q3W
     Route: 041
     Dates: start: 20190808, end: 20190808
  7. CARBOPLATIN. [Suspect]
     Active Substance: CARBOPLATIN
     Dosage: 300 MILLIGRAM, Q3W
     Route: 041
     Dates: start: 20191003, end: 20191003
  8. CARBOPLATIN. [Suspect]
     Active Substance: CARBOPLATIN
     Dosage: 260 MILLIGRAM, Q3W
     Route: 041
     Dates: start: 20191205, end: 20191205
  9. EMEND [Concomitant]
     Active Substance: APREPITANT
     Dosage: 80 MILLIGRAM, QD
     Route: 048
     Dates: start: 20190830, end: 20190831
  10. EMEND [Concomitant]
     Active Substance: APREPITANT
     Dosage: 125 MILLIGRAM, QD
     Route: 048
     Dates: start: 20191003, end: 20191003
  11. DEXART [Concomitant]
     Active Substance: DEXAMETHASONE SODIUM PHOSPHATE
     Indication: VOMITING
     Dosage: 4.95 MILLIGRAM, QD
     Route: 041
     Dates: start: 20190808, end: 20190808
  12. ABRAXANE [Suspect]
     Active Substance: PACLITAXEL
     Dosage: 88 MILLIGRAM, QW
     Route: 041
     Dates: start: 20190912, end: 20190912
  13. ABRAXANE [Suspect]
     Active Substance: PACLITAXEL
     Dosage: 88 MILLIGRAM, QW
     Route: 041
     Dates: start: 20191003, end: 2019
  14. MAGMITT [Concomitant]
     Active Substance: MAGNESIUM OXIDE
     Indication: CONSTIPATION
     Dosage: 330 MILLIGRAM, TID
     Route: 048
     Dates: start: 20190810
  15. DEXART [Concomitant]
     Active Substance: DEXAMETHASONE SODIUM PHOSPHATE
     Dosage: 4.95 MILLIGRAM, QD
     Route: 041
     Dates: start: 20190829, end: 20190829
  16. DEXART [Concomitant]
     Active Substance: DEXAMETHASONE SODIUM PHOSPHATE
     Dosage: 4.95 MILLIGRAM, QD
     Route: 041
     Dates: start: 20191205, end: 20191205
  17. KEYTRUDA [Suspect]
     Active Substance: PEMBROLIZUMAB
     Dosage: 200 MILLIGRAM, Q3W
     Route: 041
     Dates: start: 20191003, end: 20191003
  18. ABRAXANE [Suspect]
     Active Substance: PACLITAXEL
     Indication: NON-SMALL CELL LUNG CANCER
     Dosage: 117 MILLIGRAM, QW
     Route: 041
     Dates: start: 20190808, end: 201909
  19. ABRAXANE [Suspect]
     Active Substance: PACLITAXEL
     Dosage: 88 MILLIGRAM, QW
     Route: 041
     Dates: start: 2019, end: 20191226
  20. EMEND [Concomitant]
     Active Substance: APREPITANT
     Indication: VOMITING
     Dosage: 125 MILLIGRAM, QD
     Route: 048
     Dates: start: 20190808, end: 20190808
  21. EMEND [Concomitant]
     Active Substance: APREPITANT
     Dosage: 125 MILLIGRAM, QD
     Route: 048
     Dates: start: 20191205, end: 20191205
  22. ZOLPIDEM TARTRATE. [Concomitant]
     Active Substance: ZOLPIDEM TARTRATE
     Indication: INSOMNIA
     Dosage: 5 MILLIGRAM, QD
     Route: 048
     Dates: start: 20190711
  23. ALOXI [Concomitant]
     Active Substance: PALONOSETRON HYDROCHLORIDE
     Indication: VOMITING
     Dosage: 0.75 MILLIGRAM, QD
     Route: 041
     Dates: start: 20190808, end: 20190808
  24. ALOXI [Concomitant]
     Active Substance: PALONOSETRON HYDROCHLORIDE
     Dosage: 0.75 MILLIGRAM, QD
     Route: 041
     Dates: start: 20190829, end: 20190829
  25. KEYTRUDA [Suspect]
     Active Substance: PEMBROLIZUMAB
     Indication: NON-SMALL CELL LUNG CANCER
     Dosage: 200 MILLIGRAM, Q3W
     Route: 041
     Dates: start: 20190808, end: 20190829
  26. KEYTRUDA [Suspect]
     Active Substance: PEMBROLIZUMAB
     Dosage: 200 MILLIGRAM, Q3W
     Route: 041
     Dates: start: 20191205, end: 20191205
  27. CALONAL [Concomitant]
     Active Substance: ACETAMINOPHEN
     Indication: NECK PAIN
     Dosage: 500 MILLIGRAM, QID
     Route: 048
     Dates: start: 20190803, end: 20191009
  28. EMEND [Concomitant]
     Active Substance: APREPITANT
     Dosage: 80 MILLIGRAM, QD
     Route: 048
     Dates: start: 20190809, end: 20190810
  29. EMEND [Concomitant]
     Active Substance: APREPITANT
     Dosage: 125 MILLIGRAM, QD
     Route: 048
     Dates: start: 20190829, end: 20190829
  30. ALOXI [Concomitant]
     Active Substance: PALONOSETRON HYDROCHLORIDE
     Dosage: 0.75 MILLIGRAM, QD
     Route: 041
     Dates: start: 20191205, end: 20191205

REACTIONS (6)
  - Pneumonia [Recovered/Resolved]
  - C-reactive protein increased [Unknown]
  - Myelosuppression [Recovered/Resolved]
  - Constipation [Unknown]
  - Interstitial lung disease [Recovered/Resolved]
  - Organising pneumonia [Recovered/Resolved]

NARRATIVE: CASE EVENT DATE: 20190810
